FAERS Safety Report 12340720 (Version 2)
Quarter: 2016Q2

REPORT INFORMATION
  Report Type: Spontaneous
  Country: NL (occurrence: NL)
  Receive Date: 20160506
  Receipt Date: 20160607
  Transmission Date: 20160815
  Serious: Yes (Other)
  Sender: FDA-Public Use
  Company Number: NL-ASTELLAS-2016US016554

PATIENT
  Age: 24 Year
  Sex: Female

DRUGS (5)
  1. PROGRAFT [Suspect]
     Active Substance: TACROLIMUS
     Indication: SMALL INTESTINE TRANSPLANT
     Dosage: UNK UNK, UNKNOWN FREQ.
     Route: 065
  2. MYCOPHENOLATE MOFETIL. [Concomitant]
     Active Substance: MYCOPHENOLATE MOFETIL
     Indication: SMALL INTESTINE TRANSPLANT
     Dosage: UNK UNK, UNKNOWN FREQ.
     Route: 065
  3. PROGRAFT [Suspect]
     Active Substance: TACROLIMUS
     Route: 065
  4. PREDNISOLONE. [Concomitant]
     Active Substance: PREDNISOLONE
     Indication: SMALL INTESTINE TRANSPLANT
     Route: 065
  5. VEDOLIZUMAB [Concomitant]
     Active Substance: VEDOLIZUMAB
     Indication: SMALL INTESTINE TRANSPLANT
     Dosage: 300 MG, ONCE EVERY 8 WEEKS
     Route: 042

REACTIONS (5)
  - Pancreatitis [Unknown]
  - Intestine transplant rejection [Recovering/Resolving]
  - Angiopathy [Unknown]
  - Leukopenia [Unknown]
  - Off label use [Unknown]
